FAERS Safety Report 15668376 (Version 4)
Quarter: 2019Q1

REPORT INFORMATION
  Report Type: Report from Study
  Country: US (occurrence: US)
  Receive Date: 20181129
  Receipt Date: 20190322
  Transmission Date: 20190417
  Serious: Yes (Other)
  Sender: FDA-Public Use
  Company Number: US-BRISTOL-MYERS SQUIBB COMPANY-BMS-2018-112321

PATIENT
  Age: 87 Year
  Sex: Female

DRUGS (2)
  1. GEMCITABINE [Concomitant]
     Active Substance: GEMCITABINE\GEMCITABINE HYDROCHLORIDE
     Indication: PRODUCT USED FOR UNKNOWN INDICATION
     Route: 065
  2. NIVOLUMAB [Suspect]
     Active Substance: NIVOLUMAB
     Indication: NON-SMALL CELL LUNG CANCER
     Dosage: UNK, Q2WK
     Route: 042
     Dates: start: 20181114

REACTIONS (28)
  - Pulmonary oedema [Unknown]
  - Asthenia [Unknown]
  - Hyperhidrosis [Unknown]
  - Heart rate abnormal [Unknown]
  - Influenza [Unknown]
  - Oxygen saturation abnormal [Unknown]
  - Weight decreased [Unknown]
  - Fatigue [Not Recovered/Not Resolved]
  - Confusional state [Unknown]
  - Micturition urgency [Not Recovered/Not Resolved]
  - Weight increased [Unknown]
  - Dyspnoea exertional [Recovered/Resolved]
  - Asthenia [Unknown]
  - Chills [Unknown]
  - Fatigue [Unknown]
  - Gait disturbance [Not Recovered/Not Resolved]
  - Pollakiuria [Not Recovered/Not Resolved]
  - Nasal congestion [Recovering/Resolving]
  - Erythema [Unknown]
  - Hypersomnia [Unknown]
  - Constipation [Recovering/Resolving]
  - Arthralgia [Recovering/Resolving]
  - Chromaturia [Unknown]
  - Hair growth abnormal [Unknown]
  - Muscle spasms [Not Recovered/Not Resolved]
  - Hypersensitivity [Unknown]
  - Decreased appetite [Unknown]
  - Dyspnoea [Recovered/Resolved]

NARRATIVE: CASE EVENT DATE: 20190303
